FAERS Safety Report 21169447 (Version 1)
Quarter: 2022Q3

REPORT INFORMATION
  Report Type: Spontaneous
  Country: NL (occurrence: NL)
  Receive Date: 20220804
  Receipt Date: 20220804
  Transmission Date: 20221026
  Serious: Yes (Other)
  Sender: FDA-Public Use
  Company Number: None

PATIENT
  Age: 77 Year
  Sex: Female
  Weight: 68 kg

DRUGS (6)
  1. CIPROFLOXACIN [Suspect]
     Active Substance: CIPROFLOXACIN
     Indication: Cystitis bacterial
     Dosage: 2 DOSAGE FORMS DAILY; 2 X A DAY, FOR 7 DAYS, CIPROFLOXACIN 750MG / BRAND NAME NOT SPECIFIED, UNIT DO
     Dates: start: 20220708
  2. ELIQUIS [Concomitant]
     Active Substance: APIXABAN
     Indication: Product used for unknown indication
     Dosage: 10 MILLIGRAM DAILY; 2X A DAY 5 MG, APIXABAN 5MG / ELIQUIS TABLET FILM COATED 5MG, THERAPY START DATE
  3. METOPROLOL [Concomitant]
     Active Substance: METOPROLOL
     Indication: Product used for unknown indication
     Dosage: 150 MILLIGRAM DAILY; 150 MG ONCE A DAY, METOPROLOL TABLET MGA 100MG (SUCCINAAT) / METOPROLOLSUCCINAA
  4. FLECAINIDE [Concomitant]
     Active Substance: FLECAINIDE
     Indication: Product used for unknown indication
     Dosage: 200 MILLIGRAM DAILY; 2X DAY 1 TABLET 100 MG, FLECAINIDE TABLET 100MG / BRAND NAME NOT SPECIFIED, THE
  5. AMLODIPINE [Concomitant]
     Active Substance: AMLODIPINE BESYLATE
     Indication: Product used for unknown indication
     Dosage: 5 MG (MILLIGRAM), AMLODIPINE TABLET 5MG / AMLODIPINE SANDOZ TABLET 5MG (AS BESILATE), THERAPY START
  6. HYDROCHLOROTHIAZIDE [Concomitant]
     Active Substance: HYDROCHLOROTHIAZIDE
     Indication: Product used for unknown indication
     Dosage: 12.5 MILLIGRAM DAILY; 1X PER DAY 12.5 MG, HYDROCHLOROTHIAZIDE TABLET 12.5MG / BRAND NAME NOT SPECIFI

REACTIONS (4)
  - Hallucination, visual [Recovered/Resolved]
  - Arrhythmia [Recovered/Resolved]
  - Dyskinesia [Recovered/Resolved]
  - Malaise [Recovering/Resolving]

NARRATIVE: CASE EVENT DATE: 20220708
